FAERS Safety Report 8597180-3 (Version None)
Quarter: 2012Q3

REPORT INFORMATION
  Report Type: 
  Country: None (occurrence: None)
  Receive Date: 20120816
  Receipt Date: 20120808
  Transmission Date: 20120928
  Serious: No
  Sender: FDA-Public Use
  Company Number: US-BIOGENIDEC-2012BI030582

PATIENT
  Sex: Female

DRUGS (5)
  1. TYSABRI [Suspect]
     Indication: MULTIPLE SCLEROSIS
     Route: 042
     Dates: start: 20091207, end: 20100623
  2. INTERFERON BETA-1A [Concomitant]
     Route: 030
     Dates: end: 20091013
  3. INTERFERON BETA-1A [Concomitant]
     Route: 030
     Dates: start: 20100729
  4. TYSABRI [Suspect]
     Route: 042
     Dates: start: 20120425, end: 20120425
  5. INTERFERON BETA-1A [Concomitant]
     Indication: MULTIPLE SCLEROSIS
     Route: 030
     Dates: start: 20011130

REACTIONS (2)
  - GAIT DISTURBANCE [None]
  - MULTIPLE SCLEROSIS RELAPSE [None]
